FAERS Safety Report 16062894 (Version 7)
Quarter: 2024Q4

REPORT INFORMATION
  Report Type: Report from Study
  Country: US (occurrence: US)
  Receive Date: 20190312
  Receipt Date: 20241230
  Transmission Date: 20250115
  Serious: Yes (Other)
  Sender: TAKEDA
  Company Number: US-SHIRE-US201908027

PATIENT
  Age: 50 Year
  Sex: Female
  Weight: 123 kg

DRUGS (15)
  1. TEDUGLUTIDE [Suspect]
     Active Substance: TEDUGLUTIDE
     Indication: Short-bowel syndrome
     Dosage: 0.722 MILLILITER, QD
     Dates: start: 20190305, end: 20190308
  2. TEDUGLUTIDE [Suspect]
     Active Substance: TEDUGLUTIDE
     Dosage: 7.227 MICROGRAM, QD
  3. TEDUGLUTIDE [Suspect]
     Active Substance: TEDUGLUTIDE
     Dosage: 6 MILLIGRAM, QD
  4. TEDUGLUTIDE [Suspect]
     Active Substance: TEDUGLUTIDE
     Dosage: 6.8 MILLIGRAM, QD
     Dates: start: 20230612
  5. WARFARIN [Concomitant]
     Active Substance: WARFARIN
     Indication: Product used for unknown indication
     Dosage: UNK
  6. SERTRALINE HYDROCHLORIDE [Concomitant]
     Active Substance: SERTRALINE HYDROCHLORIDE
     Dosage: 50 MILLIGRAM
  7. SERTRALINE HYDROCHLORIDE [Concomitant]
     Active Substance: SERTRALINE HYDROCHLORIDE
     Dosage: 100 MILLIGRAM
  8. ACETAMINOPHEN [Concomitant]
     Active Substance: ACETAMINOPHEN
     Dosage: UNK
  9. BUSPIRONE HCL [Concomitant]
     Active Substance: BUSPIRONE HYDROCHLORIDE
     Dosage: 10 MILLIGRAM
  10. FLUTICASONE PROPIONATE [Concomitant]
     Active Substance: FLUTICASONE PROPIONATE
     Dosage: 50 MICROGRAM
  11. WARFARIN SODIUM [Concomitant]
     Active Substance: WARFARIN SODIUM
     Dosage: UNK
  12. ACETAMINOPHEN AND CODEINE [Concomitant]
     Active Substance: ACETAMINOPHEN\CODEINE PHOSPHATE
     Dosage: UNK
  13. PROTONIX [Concomitant]
     Active Substance: PANTOPRAZOLE SODIUM
     Dosage: 20 MILLIGRAM
  14. MAGNESIUM OXIDE [Concomitant]
     Active Substance: MAGNESIUM OXIDE
     Dosage: UNK
  15. POTASSIUM [Concomitant]
     Active Substance: POTASSIUM
     Dosage: UNK

REACTIONS (15)
  - Enterocutaneous fistula [Unknown]
  - Dyspepsia [Not Recovered/Not Resolved]
  - Insomnia [Recovered/Resolved]
  - Abdominal pain upper [Recovered/Resolved]
  - Feeling cold [Unknown]
  - Gastrointestinal disorder [Recovering/Resolving]
  - Gastrooesophageal reflux disease [Unknown]
  - Abdominal discomfort [Unknown]
  - Drug ineffective [Unknown]
  - Memory impairment [Recovering/Resolving]
  - Gait disturbance [Recovering/Resolving]
  - Anxiety [Recovering/Resolving]
  - Influenza like illness [Recovering/Resolving]
  - Abdominal distension [Unknown]
  - Nausea [Recovered/Resolved]

NARRATIVE: CASE EVENT DATE: 20190305
